FAERS Safety Report 7425469-X (Version None)
Quarter: 2011Q2

REPORT INFORMATION
  Report Type: 
  Country: None (occurrence: None)
  Receive Date: 20110412
  Receipt Date: 20110405
  Transmission Date: 20111010
  Serious: Yes (Hospitalization)
  Sender: FDA-Public Use
  Company Number: 2010SP034914

PATIENT
  Age: 48 Year
  Sex: Female
  Weight: 72.5755 kg

DRUGS (1)
  1. NUVARING [Suspect]
     Indication: CONTRACEPTION
     Dosage: QM
     Dates: start: 20040101, end: 20080618

REACTIONS (9)
  - EAR INFECTION [None]
  - BRONCHITIS [None]
  - HOT FLUSH [None]
  - FATIGUE [None]
  - DEVICE MISUSE [None]
  - TREATMENT NONCOMPLIANCE [None]
  - DEEP VEIN THROMBOSIS [None]
  - CANDIDA TEST POSITIVE [None]
  - ANXIETY [None]
